FAERS Safety Report 5391940-8 (Version None)
Quarter: 2007Q3

REPORT INFORMATION
  Report Type: 
  Country: None (occurrence: None)
  Receive Date: 20070720
  Receipt Date: 20070710
  Transmission Date: 20080115
  Serious: Yes (Hospitalization)
  Sender: FDA-Public Use
  Company Number: PHHO2007MX11618

PATIENT
  Age: 69 Year
  Sex: Female

DRUGS (1)
  1. DIOVAN HCT [Suspect]
     Indication: HYPERTENSION
     Dosage: 160MG/25MG DAILY
     Route: 048
     Dates: start: 20070401

REACTIONS (2)
  - DIALYSIS DEVICE INSERTION [None]
  - RENAL DISORDER [None]
